FAERS Safety Report 20295011 (Version 2)
Quarter: 2022Q1

REPORT INFORMATION
  Report Type: Spontaneous
  Country: JP (occurrence: JP)
  Receive Date: 20220104
  Receipt Date: 20220107
  Transmission Date: 20220424
  Serious: Yes (Other)
  Sender: FDA-Public Use
  Company Number: None

PATIENT
  Sex: Female

DRUGS (2)
  1. PREDNISOLONE [Suspect]
     Active Substance: PREDNISOLONE
     Indication: Systemic lupus erythematosus
     Dosage: 6 MILLIGRAM (LONG TERM)
     Route: 048
  2. CHLOROQUINE [Concomitant]
     Active Substance: CHLOROQUINE
     Indication: Systemic lupus erythematosus
     Dosage: UNK
     Route: 065

REACTIONS (5)
  - Renal impairment [Unknown]
  - Osteonecrosis [Unknown]
  - Epstein-Barr virus infection [Recovered/Resolved]
  - Retinitis viral [Recovered/Resolved]
  - Toxicity to various agents [Unknown]

NARRATIVE: CASE EVENT DATE: 20201201
